FAERS Safety Report 8026274-6 (Version None)
Quarter: 2012Q1

REPORT INFORMATION
  Report Type: 
  Country: None (occurrence: None)
  Receive Date: 20120105
  Receipt Date: 20111121
  Transmission Date: 20120608
  Serious: No
  Sender: FDA-Public Use
  Company Number: US-ABBOTT-11P-163-0877207-00

PATIENT
  Sex: Female
  Weight: 61.29 kg

DRUGS (1)
  1. SYNTHROID [Suspect]
     Indication: HYPOTHYROIDISM
     Dosage: HALF A TABLET DAILY
     Route: 048
     Dates: start: 20050101

REACTIONS (4)
  - PRODUCT QUALITY ISSUE [None]
  - ASTHENIA [None]
  - MOBILITY DECREASED [None]
  - DEPRESSION [None]
